FAERS Safety Report 9479595 (Version 2)
Quarter: 2013Q3

REPORT INFORMATION
  Report Type: Spontaneous
  Country: BR (occurrence: BR)
  Receive Date: 20130827
  Receipt Date: 20130827
  Transmission Date: 20140515
  Serious: Yes (Other)
  Sender: FDA-Public Use
  Company Number: PHHY2013BR074343

PATIENT
  Sex: Male
  Weight: 34.5 kg

DRUGS (4)
  1. RITALINA [Suspect]
     Indication: ATTENTION DEFICIT/HYPERACTIVITY DISORDER
     Dosage: 2 DF, DAILY
     Route: 048
  2. RITALINA [Suspect]
     Dosage: 1 DF, DAILY
     Route: 048
  3. RITALINA [Suspect]
     Dosage: 2 DF, DAILY
     Route: 048
     Dates: start: 201307, end: 201307
  4. RITALIN LA [Suspect]
     Dosage: 1 DF, DAILY
     Route: 048
     Dates: start: 20130805

REACTIONS (7)
  - Rebound effect [Recovered/Resolved]
  - Anxiety [Not Recovered/Not Resolved]
  - Insomnia [Not Recovered/Not Resolved]
  - Decreased appetite [Recovering/Resolving]
  - Abdominal pain [Recovered/Resolved]
  - Psychomotor hyperactivity [Recovered/Resolved]
  - Crying [Not Recovered/Not Resolved]
